FAERS Safety Report 8229714-2 (Version None)
Quarter: 2012Q1

REPORT INFORMATION
  Report Type: 
  Country: None (occurrence: None)
  Receive Date: 20120322
  Receipt Date: 20120313
  Transmission Date: 20120608
  Serious: Yes (Other)
  Sender: FDA-Public Use
  Company Number: US-ASTRAZENECA-2010SE41960

PATIENT
  Age: 82 Year
  Sex: Female
  Weight: 45.8 kg

DRUGS (7)
  1. ZOMETA INFUSION [Concomitant]
  2. FASLODEX [Suspect]
     Indication: BREAST CANCER METASTATIC
     Route: 030
     Dates: start: 20120131
  3. ARIMIDEX [Suspect]
     Dosage: GENERIC
     Route: 048
     Dates: start: 20100907, end: 20120131
  4. ARIMIDEX [Suspect]
     Indication: BREAST CANCER METASTATIC
     Route: 048
     Dates: start: 20100501, end: 20100906
  5. BENICAR [Concomitant]
  6. VENOTREX [Concomitant]
     Indication: HYPERTENSION
  7. SYNTHROID [Concomitant]

REACTIONS (4)
  - TUMOUR MARKER INCREASED [None]
  - INTERCEPTED DRUG ADMINISTRATION ERROR [None]
  - DRUG INEFFECTIVE [None]
  - EPHELIDES [None]
